FAERS Safety Report 8327043-X (Version None)
Quarter: 2012Q2

REPORT INFORMATION
  Report Type: 
  Country: None (occurrence: None)
  Receive Date: 20120501
  Receipt Date: 20120424
  Transmission Date: 20120825
  Serious: Yes (Life-Threatening, Hospitalization, Disabling)
  Sender: FDA-Public Use
  Company Number: DE-ABBOTT-12P-062-0906171-00

PATIENT
  Sex: Male

DRUGS (2)
  1. LUPRON [Suspect]
     Indication: TRANSITIONAL CELL CARCINOMA
  2. LUPRON [Suspect]
     Indication: PROSTATE CANCER METASTATIC
     Route: 058
     Dates: start: 20120109

REACTIONS (1)
  - CEREBROVASCULAR ACCIDENT [None]
